FAERS Safety Report 8854184 (Version 1)
Quarter: 2012Q4

REPORT INFORMATION
  Report Type: Spontaneous
  Country: US (occurrence: None)
  Receive Date: 20121019
  Receipt Date: 20121019
  Transmission Date: 20130627
  Serious: Yes (Death)
  Sender: FDA-Public Use
  Company Number: None

PATIENT
  Age: 54 Year
  Sex: Male
  Weight: 83.5 kg

DRUGS (4)
  1. SUNITINIB [Suspect]
     Indication: BLADDER CANCER
     Route: 048
  2. LISINOPRIL + HCTZ [Concomitant]
  3. LISINOPRIL [Concomitant]
  4. NORVASC [Concomitant]

REACTIONS (5)
  - Dyspepsia [None]
  - Coronary artery disease [None]
  - Unresponsive to stimuli [None]
  - Fall [None]
  - Hypertension [None]
